FAERS Safety Report 7728854-1 (Version None)
Quarter: 2011Q3

REPORT INFORMATION
  Report Type: 
  Country: None (occurrence: None)
  Receive Date: 20110831
  Receipt Date: 20110831
  Transmission Date: 20111222
  Serious: No
  Sender: FDA-Public Use
  Company Number: None

PATIENT
  Age: 75 Year
  Sex: Female
  Weight: 66.2252 kg

DRUGS (1)
  1. BOTOX [Suspect]
     Indication: SKIN COSMETIC PROCEDURE

REACTIONS (7)
  - HEADACHE [None]
  - TREATMENT FAILURE [None]
  - SOMNOLENCE [None]
  - DECREASED ACTIVITY [None]
  - ACTIVITIES OF DAILY LIVING IMPAIRED [None]
  - EAR DISCOMFORT [None]
  - MALAISE [None]
